FAERS Safety Report 8001350-2 (Version None)
Quarter: 2011Q4

REPORT INFORMATION
  Report Type: 
  Country: None (occurrence: None)
  Receive Date: 20111219
  Receipt Date: 20111205
  Transmission Date: 20120403
  Serious: Yes (Other)
  Sender: FDA-Public Use
  Company Number: 2011AP002966

PATIENT

DRUGS (1)
  1. SOTALOL HCL [Suspect]
     Indication: ATRIAL FIBRILLATION

REACTIONS (3)
  - CONDITION AGGRAVATED [None]
  - ATRIAL FIBRILLATION [None]
  - DRUG INEFFECTIVE [None]
